FAERS Safety Report 5280123-8 (Version None)
Quarter: 2007Q1

REPORT INFORMATION
  Report Type: 
  Country: None (occurrence: None)
  Receive Date: 20061229
  Receipt Date: 20061006
  Transmission Date: 20070707
  Serious: Yes (Other)
  Sender: FDA-Public Use
  Company Number: 2006UW19450

PATIENT
  Sex: Female

DRUGS (5)
  1. CRESTOR [Suspect]
  2. LIPITOR [Concomitant]
  3. PRILOSEC [Concomitant]
  4. FORADIL [Concomitant]
  5. ASMANEX TWISTHALER [Concomitant]

REACTIONS (2)
  - ASTHENIA [None]
  - ILL-DEFINED DISORDER [None]
